FAERS Safety Report 5466272-X (Version None)
Quarter: 2007Q3

REPORT INFORMATION
  Report Type: 
  Country: None (occurrence: None)
  Receive Date: 20070924
  Receipt Date: 20070912
  Transmission Date: 20080115
  Serious: Yes (Hospitalization)
  Sender: FDA-Public Use
  Company Number: FR-PFIZER INC-2007077132

PATIENT
  Sex: Female

DRUGS (6)
  1. LYRICA [Suspect]
     Indication: NEURALGIA
     Route: 048
  2. ZOVIRAX [Suspect]
     Route: 048
     Dates: start: 20070803, end: 20070805
  3. ULTRACET [Suspect]
     Indication: NEURALGIA
     Dosage: TEXT:4 UNIT DOSES
     Route: 048
  4. ZELITREX [Suspect]
     Indication: HERPES ZOSTER
     Dosage: DAILY DOSE:1GRAM
     Route: 048
  5. BRISTOPEN [Suspect]
     Dosage: DAILY DOSE:1GRAM
     Route: 048
     Dates: start: 20070803, end: 20070804
  6. AUGMENTIN '125' [Suspect]
     Route: 048

REACTIONS (1)
  - PANCYTOPENIA [None]
